FAERS Safety Report 11347521 (Version 1)
Quarter: 2015Q3

REPORT INFORMATION
  Report Type: Spontaneous
  Country: US (occurrence: US)
  Receive Date: 20150803
  Receipt Date: 20150803
  Transmission Date: 20151125
  Serious: No
  Sender: FDA-Public Use
  Company Number: US-ELI_LILLY_AND_COMPANY-US201106003287

PATIENT
  Sex: Female

DRUGS (3)
  1. ZYPREXA [Suspect]
     Active Substance: OLANZAPINE
     Indication: THINKING ABNORMAL
     Dosage: 5 MG, BID
     Dates: start: 2000, end: 201011
  2. ZYPREXA [Suspect]
     Active Substance: OLANZAPINE
     Dosage: 2.5 MG, BID
     Dates: start: 201011
  3. NAVANE [Concomitant]
     Active Substance: THIOTHIXENE

REACTIONS (4)
  - Discomfort [Unknown]
  - Mental impairment [Unknown]
  - Temperature intolerance [Not Recovered/Not Resolved]
  - Off label use [Unknown]
